FAERS Safety Report 9140034 (Version 2)
Quarter: 2013Q1

REPORT INFORMATION
  Report Type: Spontaneous
  Country: ES (occurrence: ES)
  Receive Date: 20130305
  Receipt Date: 20130312
  Transmission Date: 20140127
  Serious: Yes (Life-Threatening, Hospitalization)
  Sender: FDA-Public Use
  Company Number: ES-BAYER-2013-026604

PATIENT
  Sex: Female
  Weight: 2 kg

DRUGS (1)
  1. ADIRO 100 [Suspect]
     Dosage: 100 MG, UNK
     Route: 064
     Dates: start: 20111215, end: 20121008

REACTIONS (1)
  - Haemorrhage neonatal [Recovered/Resolved]
